FAERS Safety Report 15009395 (Version 3)
Quarter: 2018Q3

REPORT INFORMATION
  Report Type: Spontaneous
  Country: DE (occurrence: DE)
  Receive Date: 20180614
  Receipt Date: 20180822
  Transmission Date: 20181010
  Serious: Yes (Death, Hospitalization)
  Sender: FDA-Public Use
  Company Number: DE-CONCORDIA PHARMACEUTICALS INC.-E2B_00012469

PATIENT
  Age: 22 Year
  Sex: Male

DRUGS (1)
  1. PREDNISOLONE. [Suspect]
     Active Substance: PREDNISOLONE
     Indication: RHEUMATOID ARTHRITIS
     Dosage: HIGH DOSES

REACTIONS (5)
  - Osteoporosis [Unknown]
  - Dermatosis [Unknown]
  - Epidural lipomatosis [Recovered/Resolved]
  - Fat tissue increased [Unknown]
  - Cardiac failure [Fatal]
